FAERS Safety Report 23101327 (Version 4)
Quarter: 2025Q3

REPORT INFORMATION
  Report Type: Report from Study
  Country: CN (occurrence: CN)
  Receive Date: 20231024
  Receipt Date: 20250806
  Transmission Date: 20251020
  Serious: Yes (Hospitalization)
  Sender: EISAI
  Company Number: CN-Eisai-EC-2023-150937

PATIENT
  Age: 53 Year
  Sex: Male
  Weight: 62 kg

DRUGS (36)
  1. LENVATINIB [Suspect]
     Active Substance: LENVATINIB
     Indication: Hepatocellular carcinoma
     Dates: start: 20230718, end: 20230814
  2. LENVATINIB [Suspect]
     Active Substance: LENVATINIB
     Dates: start: 20230821, end: 20250121
  3. DURVALUMAB [Suspect]
     Active Substance: DURVALUMAB
     Indication: Hepatocellular carcinoma
     Dates: start: 20230724, end: 20230724
  4. DURVALUMAB [Suspect]
     Active Substance: DURVALUMAB
     Dates: start: 20230906, end: 20250416
  5. TREMELIMUMAB [Suspect]
     Active Substance: TREMELIMUMAB
     Indication: Hepatocellular carcinoma
     Dates: start: 20230718, end: 20230718
  6. TREMELIMUMAB [Suspect]
     Active Substance: TREMELIMUMAB
     Dates: start: 20230724, end: 20230724
  7. ENTECAVIR [Concomitant]
     Active Substance: ENTECAVIR
     Indication: Hepatitis B
     Dates: start: 20230705
  8. TENOFOVIR [Concomitant]
     Active Substance: TENOFOVIR
     Indication: Hepatitis B
     Dates: start: 20230705
  9. PANTOPRAZOLE [Concomitant]
     Active Substance: PANTOPRAZOLE
     Dates: start: 20230712, end: 20230727
  10. PERINDOPRIL;AMLODIPINE [Concomitant]
     Dates: start: 20230713, end: 20230726
  11. BICYCLOL [Concomitant]
     Active Substance: BICYCLOL
     Dates: start: 20230713, end: 20230727
  12. AMINO ACIDS, SOURCE UNSPECIFIED [Concomitant]
     Active Substance: AMINO ACIDS, SOURCE UNSPECIFIED
     Dates: start: 20230727, end: 20230727
  13. ILAPRAZOLE [Concomitant]
     Active Substance: ILAPRAZOLE
     Dates: start: 20230727, end: 20230801
  14. LIPOSYN (R) INTRAVENOUS FAT EMULSION [Concomitant]
     Active Substance: LIPOSYN (R) INTRAVENOUS FAT EMULSION
     Dates: start: 20230727, end: 20230727
  15. PHOSPHOLIPID [Concomitant]
     Active Substance: PHOSPHOLIPID
     Dates: start: 20230815, end: 20230821
  16. PHOSPHOLIPID [Concomitant]
     Active Substance: PHOSPHOLIPID
     Dates: start: 20230727, end: 20230808
  17. GLUTATHIONE [Concomitant]
     Active Substance: GLUTATHIONE
     Dates: start: 20230727, end: 20230808
  18. SODIUM POTASSIUM MAGNESIUM CALCIUM AND GLUCOSE [Concomitant]
  19. TROPISETRON HYDROCHLORIDE [Concomitant]
     Active Substance: TROPISETRON HYDROCHLORIDE
     Dates: start: 20230727, end: 20230727
  20. ONDANSETRON HYDROCHLORIDE [Concomitant]
     Active Substance: ONDANSETRON HYDROCHLORIDE
     Dates: start: 20230728, end: 20230729
  21. CALAMINE PHENOLATED TOPICAL SUSPENSION [Concomitant]
     Active Substance: PHENOL\ZINC OXIDE
  22. MEDROXYPROGESTERONE ACETATE [Concomitant]
     Active Substance: MEDROXYPROGESTERONE ACETATE
     Dates: start: 20230731, end: 20230803
  23. CETIRIZINE HYDROCHLORIDE [Concomitant]
     Active Substance: CETIRIZINE HYDROCHLORIDE
     Dates: start: 20230801, end: 20230803
  24. BUDESONIDE [Concomitant]
     Active Substance: BUDESONIDE
  25. ESOMEPRAZOLE SODIUM [Concomitant]
     Active Substance: ESOMEPRAZOLE SODIUM
     Dates: start: 20230802, end: 20230821
  26. DEXTROSE [Concomitant]
     Active Substance: DEXTROSE MONOHYDRATE
     Dates: start: 20230803, end: 20230806
  27. ALANYL GLUTAMINE [Concomitant]
     Active Substance: ALANYL GLUTAMINE
     Dates: start: 20230803, end: 20230806
  28. SODIUM CHLORIDE [Concomitant]
     Active Substance: SODIUM CHLORIDE
     Dates: start: 20230803, end: 20230806
  29. INSULIN NOS [Concomitant]
     Active Substance: INSULIN NOS
     Dates: start: 20230803, end: 20230806
  30. OCTREOTIDE ACETATE [Concomitant]
     Active Substance: OCTREOTIDE ACETATE
     Dates: start: 20230803, end: 20230807
  31. AMMONIUM CHLORIDE [Concomitant]
     Active Substance: AMMONIUM CHLORIDE
     Dates: start: 20230803, end: 20230807
  32. STRUCTURAL FAT EMULSION INJECTION [Concomitant]
     Dates: start: 20230803, end: 20230806
  33. VITAMIN B6 [Concomitant]
     Active Substance: PYRIDOXINE HYDROCHLORIDE
     Dates: start: 20230803, end: 20230803
  34. RABEPRAZOLE SODIUM [Concomitant]
     Active Substance: RABEPRAZOLE SODIUM
     Dates: start: 20230806, end: 20230808
  35. ESOMEPRAZOLE MAGNESIUM [Concomitant]
     Active Substance: ESOMEPRAZOLE MAGNESIUM
  36. BENZOIC ACID [Concomitant]
     Active Substance: BENZOIC ACID
     Dates: start: 20230801, end: 20230806

REACTIONS (1)
  - Hepatic function abnormal [Recovered/Resolved]

NARRATIVE: CASE EVENT DATE: 20230815
